FAERS Safety Report 6965651-9 (Version None)
Quarter: 2010Q3

REPORT INFORMATION
  Report Type: 
  Country: None (occurrence: None)
  Receive Date: 20100903
  Receipt Date: 20100831
  Transmission Date: 20110219
  Serious: Yes (Death, Hospitalization)
  Sender: FDA-Public Use
  Company Number: IT-ROCHE-520767

PATIENT
  Sex: Male
  Weight: 92 kg

DRUGS (6)
  1. BEVACIZUMAB [Suspect]
     Indication: METASTATIC RENAL CELL CARCINOMA
     Route: 042
     Dates: start: 20060828, end: 20070906
  2. INTERFERON ALFA-2A [Suspect]
     Indication: METASTATIC RENAL CELL CARCINOMA
     Dosage: ON DAY 10, 12, 17 AND 19
     Route: 058
  3. GEMCITABINA [Suspect]
     Indication: METASTATIC RENAL CELL CARCINOMA
     Dosage: DOSE REPORTED AS 1000MG/M2. TOTAL DOSE REPORTED AS 2100 MG.
     Route: 042
  4. FLUOROURACIL [Suspect]
     Indication: METASTATIC RENAL CELL CARCINOMA
     Dosage: DOSE REPORTED AS 1040MG. TOTAL DOSE REPORTED AS 1 - 8.
     Route: 040
  5. PROLEUKIN [Suspect]
     Indication: METASTATIC RENAL CELL CARCINOMA
     Dosage: DOSE: 1 MIU/M2 ON DAY 8, 9, 15, 16 AND ONCE A DAY FROM DAY 10 TO 12 AND 17 TO 19
     Route: 058
  6. ZOMETA [Concomitant]
     Dates: start: 20060727, end: 20070806

REACTIONS (1)
  - ACUTE MYELOID LEUKAEMIA [None]
